FAERS Safety Report 9494387 (Version 2)
Quarter: 2014Q1

REPORT INFORMATION
  Report Type: Spontaneous
  Country: US (occurrence: None)
  Receive Date: 20130828
  Receipt Date: 20140212
  Transmission Date: 20141002
  Serious: Yes (Other)
  Sender: FDA-Public Use
  Company Number: JPI-P-034623

PATIENT
  Age: 50 Year
  Sex: Female
  Weight: 63.6 kg

DRUGS (20)
  1. XYREM (500 MILLIGRAM/MILLILITERS, SOLUTION) (SODIUM OXYBATE) [Suspect]
     Indication: NARCOLEPSY
     Route: 048
     Dates: start: 200912
  2. XYREM (500 MILLIGRAM/MILLILITERS, SOLUTION) (SODIUM OXYBATE) [Suspect]
     Indication: CATAPLEXY
     Route: 048
     Dates: start: 200912
  3. NEURONTIN [Suspect]
     Indication: SYSTEMIC LUPUS ERYTHEMATOSUS
  4. NEURONTIN [Suspect]
  5. DEPO-PROVERA [Concomitant]
  6. FEXOFENADINE HYDROCHLORIDE [Concomitant]
  7. SPIRONOLACTONE [Concomitant]
  8. CALCIUM CITRATE [Concomitant]
  9. VITAMIN D [Concomitant]
  10. MONTELUKAST SODIUM [Concomitant]
  11. MODAFINIL [Concomitant]
  12. CITRA-K/CITRA-2 [Concomitant]
  13. PANTOPRAZOLE [Concomitant]
  14. CELECOXIB [Concomitant]
  15. DECADRON [Concomitant]
  16. BACLOFEN [Concomitant]
  17. KLONOPIN [Concomitant]
  18. NORCO [Concomitant]
  19. ONDANSETRON HYDROCHLORIDE [Concomitant]
  20. TOPIRAMATE (TOPIRAMATE) [Suspect]
     Indication: MIGRAINE

REACTIONS (6)
  - Convulsion [None]
  - Confusional state [None]
  - Road traffic accident [None]
  - Seizure like phenomena [None]
  - Cataplexy [None]
  - Confusional arousal [None]
